FAERS Safety Report 15615849 (Version 2)
Quarter: 2018Q4

REPORT INFORMATION
  Report Type: Spontaneous
  Country: JP (occurrence: JP)
  Receive Date: 20181114
  Receipt Date: 20181114
  Transmission Date: 20190205
  Serious: Yes (Other)
  Sender: FDA-Public Use
  Company Number: JP-ROCHE-2214426

PATIENT
  Age: 11 Year
  Sex: Male

DRUGS (5)
  1. TACROLIMUS HYDRATE [Concomitant]
     Active Substance: TACROLIMUS
     Dosage: DOSAGE IS UNCERTAIN.
     Route: 065
  2. RITUXIMAB. [Concomitant]
     Active Substance: RITUXIMAB
  3. EVEROLIMUS. [Concomitant]
     Active Substance: EVEROLIMUS
  4. PREDNISOLONE. [Concomitant]
     Active Substance: PREDNISOLONE
  5. CELLCEPT [Suspect]
     Active Substance: MYCOPHENOLATE MOFETIL\MYCOPHENOLATE MOFETIL HYDROCHLORIDE
     Indication: PROPHYLAXIS AGAINST TRANSPLANT REJECTION
     Dosage: DOSAGE IS UNCERTAIN.
     Route: 048

REACTIONS (4)
  - Epstein-Barr virus test positive [Unknown]
  - Renal impairment [Unknown]
  - Post transplant lymphoproliferative disorder [Unknown]
  - Infected neoplasm [Unknown]
